FAERS Safety Report 15969461 (Version 3)
Quarter: 2019Q3

REPORT INFORMATION
  Report Type: Report from Study
  Country: US (occurrence: US)
  Receive Date: 20190215
  Receipt Date: 20190904
  Transmission Date: 20191004
  Serious: Yes (Hospitalization)
  Sender: FDA-Public Use
  Company Number: US-ACTELION-A-NJ2019-186305

PATIENT
  Sex: Male
  Weight: 26.76 kg

DRUGS (2)
  1. COUMADIN [Concomitant]
     Active Substance: WARFARIN SODIUM
  2. OPSUMIT [Suspect]
     Active Substance: MACITENTAN
     Indication: PULMONARY HYPERTENSION
     Dosage: 10 MG, QD
     Route: 048
     Dates: end: 201908

REACTIONS (4)
  - Anaemia [Unknown]
  - Pulmonary arterial pressure increased [Unknown]
  - Catheterisation cardiac [Unknown]
  - International normalised ratio increased [Unknown]
